FAERS Safety Report 25109795 (Version 2)
Quarter: 2025Q2

REPORT INFORMATION
  Report Type: Spontaneous
  Country: JP (occurrence: JP)
  Receive Date: 20250324
  Receipt Date: 20250408
  Transmission Date: 20250717
  Serious: Yes (Other)
  Sender: COLLEGIUM PHARMACEUTICAL
  Company Number: JP-shionogi-202500002730

PATIENT
  Age: 60 Year
  Sex: Male

DRUGS (2)
  1. SYMPROIC [Suspect]
     Active Substance: NALDEMEDINE TOSYLATE
     Indication: Product used for unknown indication
     Route: 048
  2. METHADONE HYDROCHLORIDE [Suspect]
     Active Substance: METHADONE HYDROCHLORIDE
     Indication: Cancer pain
     Route: 048
     Dates: start: 20250130, end: 20250206

REACTIONS (1)
  - Atrial fibrillation [Recovered/Resolved]

NARRATIVE: CASE EVENT DATE: 20250204
